APPROVED DRUG PRODUCT: TOPIRAMATE
Active Ingredient: TOPIRAMATE
Strength: 100MG
Dosage Form/Route: TABLET;ORAL
Application: A215414 | Product #003 | TE Code: AB
Applicant: ASCENT PHARMACEUTICALS INC
Approved: Aug 26, 2021 | RLD: No | RS: No | Type: RX